FAERS Safety Report 10714620 (Version 1)
Quarter: 2015Q1

REPORT INFORMATION
  Report Type: Report from Study
  Country: US (occurrence: US)
  Receive Date: 20150115
  Receipt Date: 20150115
  Transmission Date: 20150721
  Serious: Yes (Life-Threatening)
  Sender: FDA-Public Use
  Company Number: US-009507513-1501USA000894

PATIENT

DRUGS (1)
  1. TEMODAR [Suspect]
     Active Substance: TEMOZOLOMIDE
     Indication: ANAPLASTIC OLIGODENDROGLIOMA
     Dosage: 150 MG/M2, DAYS 1-7 AND 15-21 EVERY 28 DAYS FOR 8 CYCLES
     Route: 048

REACTIONS (2)
  - Neutropenia [Unknown]
  - Leukopenia [Unknown]
